FAERS Safety Report 10218916 (Version 1)
Quarter: 2014Q2

REPORT INFORMATION
  Report Type: Spontaneous
  Country: GB (occurrence: None)
  Receive Date: 20140603
  Receipt Date: 20140603
  Transmission Date: 20141212
  Serious: Yes (Other)
  Sender: FDA-Public Use
  Company Number: 2014000169

PATIENT
  Age: 80 Year
  Sex: Male
  Weight: 85 kg

DRUGS (10)
  1. ACEON (PERINDOPRIL ERBUMINE) TABLET [Suspect]
     Indication: PRODUCT USED FOR UNKNOWN INDICATION
     Dates: start: 20140501
  2. AMLODIPIEN (AMLODIPIEN) [Concomitant]
  3. CANDESARTAN (CANDESARTAN) [Concomitant]
  4. CHLORAMPHENICOL (CHLORAMPHERICOL) [Concomitant]
  5. FERROUS FUMARATE (FERROUS FUMARATE) [Concomitant]
  6. GLYCERYL TRINITRATE (GLYCERYL TRINITRATE) [Concomitant]
  7. LOSARTAN (LOSARTAN) [Concomitant]
  8. OMEPRAZOLE (OMEPRAZOLE) [Concomitant]
  9. PARACETAMOL (PARACETAMOL) [Concomitant]
  10. RAMIPRIL (RAMIPRIL) [Concomitant]

REACTIONS (1)
  - Diarrhoea [None]
